FAERS Safety Report 13615666 (Version 2)
Quarter: 2018Q1

REPORT INFORMATION
  Report Type: Spontaneous
  Country: FR (occurrence: FR)
  Receive Date: 20170606
  Receipt Date: 20180301
  Transmission Date: 20180508
  Serious: Yes (Other)
  Sender: FDA-Public Use
  Company Number: FR-BAYER-2017-100662

PATIENT
  Age: 41 Year
  Sex: Female
  Weight: 53 kg

DRUGS (2)
  1. MIRENA [Suspect]
     Active Substance: LEVONORGESTREL
  2. MIRENA [Suspect]
     Active Substance: LEVONORGESTREL
     Indication: PRODUCT USED FOR UNKNOWN INDICATION
     Dosage: 20 MCG/24HR, CONT
     Route: 015
     Dates: start: 20141028

REACTIONS (11)
  - Headache [Recovered/Resolved]
  - Abdominal pain [Not Recovered/Not Resolved]
  - Abdominal distension [Recovered/Resolved]
  - Vertigo [Not Recovered/Not Resolved]
  - Loss of libido [Recovering/Resolving]
  - Nausea [Not Recovered/Not Resolved]
  - Irritability [Recovered/Resolved]
  - Breast pain [Not Recovered/Not Resolved]
  - Memory impairment [Recovered/Resolved]
  - Diffuse alopecia [Recovering/Resolving]
  - Anxiety [Recovered/Resolved]
